FAERS Safety Report 13836551 (Version 2)
Quarter: 2017Q4

REPORT INFORMATION
  Report Type: Spontaneous
  Country: US (occurrence: US)
  Receive Date: 20170804
  Receipt Date: 20171019
  Transmission Date: 20180320
  Serious: Yes (Other)
  Sender: FDA-Public Use
  Company Number: US-ELI_LILLY_AND_COMPANY-US201707011228

PATIENT
  Sex: Male

DRUGS (2)
  1. BASAGLAR [Suspect]
     Active Substance: INSULIN GLARGINE
     Indication: TYPE 2 DIABETES MELLITUS
     Dosage: UNK, UNKNOWN
     Route: 065
  2. LANTUS [Concomitant]
     Active Substance: INSULIN GLARGINE
     Indication: LIVER DISORDER
     Dosage: UNK, UNKNOWN
     Route: 065

REACTIONS (6)
  - Nausea [Unknown]
  - Dizziness [Unknown]
  - Speech disorder [Unknown]
  - Migraine [Unknown]
  - Off label use [Unknown]
  - Blood glucose increased [Unknown]
